FAERS Safety Report 9816885 (Version 1)
Quarter: 2014Q1

REPORT INFORMATION
  Report Type: Spontaneous
  Country: US (occurrence: US)
  Receive Date: 20140114
  Receipt Date: 20140114
  Transmission Date: 20141002
  Serious: No
  Sender: FDA-Public Use
  Company Number: US-BAUSCH-BL-2013-006873

PATIENT
  Age: 58 Year
  Sex: Female
  Weight: 54.48 kg

DRUGS (2)
  1. LOTEMAX (LOTEPREDNOL ETABONATE OPHTHALMIC GEL 0.5%) [Suspect]
     Indication: EYE INFLAMMATION
     Dosage: DROP; OPHTHALMIC
     Route: 047
     Dates: start: 20131126, end: 20131202
  2. LOTEMAX (LOTEPREDNOL ETABONATE OPHTHALMIC GEL 0.5%) [Suspect]
     Indication: OCULAR HYPERAEMIA

REACTIONS (4)
  - Off label use [Recovered/Resolved]
  - Eye irritation [Recovering/Resolving]
  - Photophobia [Recovering/Resolving]
  - Asthenopia [Recovering/Resolving]
